FAERS Safety Report 6112464-6 (Version None)
Quarter: 2009Q1

REPORT INFORMATION
  Report Type: 
  Country: None (occurrence: None)
  Receive Date: 20090312
  Receipt Date: 20090309
  Transmission Date: 20090719
  Serious: Yes (Hospitalization)
  Sender: FDA-Public Use
  Company Number: CA-JNJFOC-20090301906

PATIENT
  Sex: Male

DRUGS (15)
  1. EXTRA STRENGTH TYLENOL [Suspect]
  2. EXTRA STRENGTH TYLENOL [Suspect]
  3. EXTRA STRENGTH TYLENOL [Suspect]
     Indication: PAIN
  4. RIVAROXABAN [Concomitant]
     Route: 048
  5. RIVAROXABAN [Concomitant]
     Route: 048
  6. RIVAROXABAN [Concomitant]
     Indication: EMBOLISM
     Route: 048
  7. METFORMIN HCL [Concomitant]
     Indication: DIABETES MELLITUS
     Route: 048
  8. RABERPRAZOLE [Concomitant]
     Indication: GASTROOESOPHAGEAL REFLUX DISEASE
     Route: 048
  9. DIAMICRON MR [Concomitant]
     Indication: DIABETES MELLITUS
     Route: 048
  10. AVANDIA [Concomitant]
     Indication: DIABETES MELLITUS
     Route: 048
  11. REGULAR INSULIN [Concomitant]
     Indication: DIABETES MELLITUS
     Route: 058
  12. APO-HYDRO [Concomitant]
     Indication: HYPERTENSION
     Route: 048
  13. APO-RAMIPRIL [Concomitant]
     Indication: HYPERTENSION
     Route: 048
  14. CRESTOR [Concomitant]
     Indication: HYPERLIPIDAEMIA
     Route: 048
  15. DETROL [Concomitant]
     Indication: URINARY RETENTION
     Route: 048

REACTIONS (2)
  - HEPATOTOXICITY [None]
  - OVERDOSE [None]
